FAERS Safety Report 20710298 (Version 1)
Quarter: 2022Q2

REPORT INFORMATION
  Report Type: Spontaneous
  Country: US (occurrence: None)
  Receive Date: 20220414
  Receipt Date: 20220414
  Transmission Date: 20220721
  Serious: Yes (Other)
  Sender: FDA-Public Use
  Company Number: None

PATIENT
  Age: 53 Year
  Sex: Female

DRUGS (9)
  1. TYMLOS [Suspect]
     Active Substance: ABALOPARATIDE
     Dates: start: 20210630
  2. IBUPROFEN [Concomitant]
     Active Substance: IBUPROFEN
  3. PAROXETINE [Concomitant]
     Active Substance: PAROXETINE
  4. GABAPENTIN [Concomitant]
     Active Substance: GABAPENTIN
  5. VITAMIN D3 [Concomitant]
     Active Substance: CHOLECALCIFEROL
  6. VITAMINS [Concomitant]
     Active Substance: VITAMINS
  7. LIDOCAINE PATCH [Concomitant]
     Active Substance: LIDOCAINE
  8. DICLOFENAC [Concomitant]
     Active Substance: DICLOFENAC
  9. OMEGA-3 ACIDS [Concomitant]
     Active Substance: OMEGA-3 FATTY ACIDS

REACTIONS (2)
  - Injection site bruising [None]
  - Weight increased [None]

NARRATIVE: CASE EVENT DATE: 20220413
